FAERS Safety Report 23616474 (Version 2)
Quarter: 2024Q1

REPORT INFORMATION
  Report Type: Spontaneous
  Country: US (occurrence: US)
  Receive Date: 20240311
  Receipt Date: 20240312
  Transmission Date: 20240410
  Serious: No
  Sender: FDA-Public Use
  Company Number: US-PFIZER INC-202400041704

PATIENT
  Age: 5 Decade
  Sex: Female
  Weight: 76.66 kg

DRUGS (1)
  1. ESTRING [Suspect]
     Active Substance: ESTRADIOL
     Indication: Vulvovaginal dryness
     Dosage: UNK
     Route: 067

REACTIONS (2)
  - Vulvovaginal discomfort [Unknown]
  - Product size issue [Unknown]
